FAERS Safety Report 4478725-1 (Version None)
Quarter: 2004Q4

REPORT INFORMATION
  Report Type: 
  Country: None (occurrence: None)
  Receive Date: 20041019
  Receipt Date: 20041008
  Transmission Date: 20050328
  Serious: Yes (Disabling)
  Sender: FDA-Public Use
  Company Number: JP-JNJFOC-20040900954

PATIENT
  Age: 61 Year
  Sex: Male

DRUGS (4)
  1. TAVANIC [Suspect]
     Indication: SINUSITIS
     Route: 049
     Dates: start: 20040605, end: 20040615
  2. TAVANIC [Suspect]
     Indication: BRONCHITIS
     Route: 049
     Dates: start: 20040605, end: 20040615
  3. ALLERGODIL [Concomitant]
     Indication: BRONCHITIS
     Route: 055
  4. AMBROXOL [Concomitant]
     Indication: BRONCHITIS
     Route: 049

REACTIONS (2)
  - AGEUSIA [None]
  - ANOSMIA [None]
